FAERS Safety Report 7486578-2 (Version None)
Quarter: 2011Q2

REPORT INFORMATION
  Report Type: 
  Country: None (occurrence: None)
  Receive Date: 20110516
  Receipt Date: 20110516
  Transmission Date: 20111010
  Serious: Yes (Hospitalization, Other)
  Sender: FDA-Public Use
  Company Number: None

PATIENT
  Age: 42 Year
  Sex: Female
  Weight: 61.2356 kg

DRUGS (1)
  1. MUCINEX DM [Suspect]
     Indication: CHEST DISCOMFORT
     Dosage: 1 ONLY 1 PO
     Route: 048
     Dates: start: 20101225, end: 20101225

REACTIONS (5)
  - BLOOD PRESSURE INCREASED [None]
  - HALLUCINATION [None]
  - DYSPNOEA [None]
  - DIZZINESS [None]
  - PARAESTHESIA [None]
